FAERS Safety Report 18435224 (Version 1)
Quarter: 2020Q4

REPORT INFORMATION
  Report Type: Spontaneous
  Country: CN (occurrence: CN)
  Receive Date: 20201027
  Receipt Date: 20201027
  Transmission Date: 20210114
  Serious: Yes (Disabling)
  Sender: FDA-Public Use
  Company Number: CN-BAXTER-2020BAX021434

PATIENT
  Age: 68 Year
  Sex: Male
  Weight: 82 kg

DRUGS (7)
  1. LOW MOLECULAR WEIGHT HEPARIN CALCIUM [Suspect]
     Active Substance: HEPARIN CALCIUM
     Indication: NUTRITIONAL SUPPLEMENTATION
  2. LOW MOLECULAR WEIGHT HEPARIN CALCIUM [Suspect]
     Active Substance: HEPARIN CALCIUM
     Indication: ANTICOAGULANT THERAPY
  3. METRONIDAZOLE AND SODIUM CHLORIDE INJECTION [Suspect]
     Active Substance: METRONIDAZOLE\SODIUM CHLORIDE
     Indication: RECTAL CANCER
     Dosage: IVGTT;Q12H
     Route: 041
     Dates: start: 20200924, end: 20200928
  4. CEFUROXIME SODIUM. [Suspect]
     Active Substance: CEFUROXIME SODIUM
     Indication: ANTIBIOTIC PROPHYLAXIS
  5. METRONIDAZOLE AND SODIUM CHLORIDE INJECTION [Suspect]
     Active Substance: METRONIDAZOLE\SODIUM CHLORIDE
     Indication: ANTIBIOTIC PROPHYLAXIS
  6. CEFUROXIME SODIUM. [Suspect]
     Active Substance: CEFUROXIME SODIUM
     Indication: RECTAL CANCER
     Dosage: IVGTT, Q12H
     Route: 041
     Dates: start: 20200924, end: 20200928
  7. LOW MOLECULAR WEIGHT HEPARIN CALCIUM [Suspect]
     Active Substance: HEPARIN CALCIUM
     Indication: RECTAL CANCER
     Dosage: DOSE: 4100 UNITS IH; QD
     Route: 058
     Dates: start: 20200924, end: 20200930

REACTIONS (1)
  - Hepatic function abnormal [Recovering/Resolving]

NARRATIVE: CASE EVENT DATE: 20200930
